FAERS Safety Report 9585728 (Version 2)
Quarter: 2013Q4

REPORT INFORMATION
  Report Type: Spontaneous
  Country: DE (occurrence: DE)
  Receive Date: 20131003
  Receipt Date: 20131015
  Transmission Date: 20140711
  Serious: No
  Sender: FDA-Public Use
  Company Number: DE-SHIRE-ALL1-2013-06571

PATIENT
  Age: 17 Year
  Sex: Male

DRUGS (1)
  1. ELVANSE [Suspect]
     Indication: PRODUCT USED FOR UNKNOWN INDICATION
     Dosage: 30 MG, UNKNOWN
     Route: 048
     Dates: start: 201309, end: 201309

REACTIONS (2)
  - Extrasystoles [Unknown]
  - Drug ineffective [Unknown]
